FAERS Safety Report 19138492 (Version 1)
Quarter: 2021Q2

REPORT INFORMATION
  Report Type: Spontaneous
  Country: US (occurrence: US)
  Receive Date: 20210415
  Receipt Date: 20210415
  Transmission Date: 20210717
  Serious: Yes (Hospitalization)
  Sender: FDA-Public Use
  Company Number: US-PACIRA-2021000267

PATIENT
  Age: 77 Year
  Sex: Female
  Weight: 50 kg

DRUGS (6)
  1. NORCURON [Concomitant]
     Active Substance: VECURONIUM BROMIDE
     Dosage: 5 MG
     Route: 065
  2. SUX [Concomitant]
     Dosage: 100 MG
     Route: 065
  3. EXPAREL [Suspect]
     Active Substance: BUPIVACAINE
     Dosage: 798 MG OF EXPAREL (60 ML UNDILUTED), INFILTRATED
     Dates: start: 20210331, end: 20210331
  4. PROPOFOL. [Concomitant]
     Active Substance: PROPOFOL
     Dosage: 200 MG
     Route: 065
  5. SEVOFLURANE. [Concomitant]
     Active Substance: SEVOFLURANE
     Dosage: NOT PROVIDE
     Route: 065
  6. FENTANYL. [Concomitant]
     Active Substance: FENTANYL
     Dosage: 100 MCG
     Route: 065

REACTIONS (5)
  - Off label use [Unknown]
  - Overdose [Recovered/Resolved]
  - Product use issue [Unknown]
  - Hypertension [Recovered/Resolved]
  - Headache [Recovered/Resolved]

NARRATIVE: CASE EVENT DATE: 20210331
